FAERS Safety Report 9296254 (Version 1)
Quarter: 2013Q2

REPORT INFORMATION
  Report Type: Report from Study
  Country: SE (occurrence: SE)
  Receive Date: 20130517
  Receipt Date: 20130517
  Transmission Date: 20140414
  Serious: Yes (Other)
  Sender: FDA-Public Use
  Company Number: SE-GLAXOSMITHKLINE-B0892530A

PATIENT
  Sex: 0

DRUGS (1)
  1. PAZOPANIB [Suspect]
     Indication: RENAL CANCER
     Route: 065

REACTIONS (6)
  - Angina pectoris [Unknown]
  - Pyrexia [Unknown]
  - Cough [Unknown]
  - Hypertonia [Unknown]
  - Nausea [Unknown]
  - Fatigue [Unknown]
